FAERS Safety Report 7879636-1 (Version None)
Quarter: 2011Q4

REPORT INFORMATION
  Report Type: 
  Country: None (occurrence: None)
  Receive Date: 20111101
  Receipt Date: 20111019
  Transmission Date: 20120403
  Serious: Yes (Congenital Anomaly)
  Sender: FDA-Public Use
  Company Number: US-GLAXOSMITHKLINE-A0951261A

PATIENT
  Sex: Male

DRUGS (1)
  1. PAXIL [Suspect]
     Indication: DEPRESSION
     Route: 064

REACTIONS (4)
  - PULMONARY HYPERTENSION [None]
  - MATERNAL EXPOSURE DURING PREGNANCY [None]
  - ANOMALOUS PULMONARY VENOUS CONNECTION [None]
  - DRUG WITHDRAWAL SYNDROME [None]
